FAERS Safety Report 6854654-0 (Version None)
Quarter: 2010Q3

REPORT INFORMATION
  Report Type: 
  Country: None (occurrence: None)
  Receive Date: 20100717
  Receipt Date: 20080108
  Transmission Date: 20110219
  Serious: No
  Sender: FDA-Public Use
  Company Number: US-PFIZER INC-2008004642

PATIENT
  Age: 55 Year
  Sex: Female
  Weight: 59 kg

DRUGS (6)
  1. CHANTIX [Suspect]
     Indication: SMOKING CESSATION THERAPY
     Dates: start: 20070201
  2. UNITHROID [Concomitant]
  3. PREMPRO [Concomitant]
  4. IBANDRONATE SODIUM [Concomitant]
  5. LIPITOR [Concomitant]
  6. CALCIUM [Concomitant]

REACTIONS (2)
  - NAUSEA [None]
  - VOMITING [None]
